FAERS Safety Report 8546386-8 (Version None)
Quarter: 2012Q3

REPORT INFORMATION
  Report Type: 
  Country: None (occurrence: None)
  Receive Date: 20120727
  Receipt Date: 20120103
  Transmission Date: 20120928
  Serious: No
  Sender: FDA-Public Use
  Company Number: US-ASTRAZENECA-2012SE00649

PATIENT
  Age: 15 Year
  Sex: Male

DRUGS (2)
  1. ABILIFY [Concomitant]
     Indication: AGGRESSION
  2. SEROQUEL [Suspect]
     Indication: AUTISM
     Route: 048

REACTIONS (4)
  - SPEECH DISORDER [None]
  - OFF LABEL USE [None]
  - NERVOUSNESS [None]
  - HYPOKINESIA [None]
